FAERS Safety Report 17896381 (Version 1)
Quarter: 2020Q2

REPORT INFORMATION
  Report Type: Spontaneous
  Country: PL (occurrence: PL)
  Receive Date: 20200615
  Receipt Date: 20200615
  Transmission Date: 20200714
  Serious: Yes (Hospitalization)
  Sender: FDA-Public Use
  Company Number: PHHY2017PL140810

PATIENT
  Age: 4 Year
  Sex: Female

DRUGS (2)
  1. MOMETASONE [Suspect]
     Active Substance: MOMETASONE
     Dosage: UNK, 2-3 TIMES PER WEEK (IN CASE OF EXACERBATION)
     Route: 003
  2. MOMETASONE [Suspect]
     Active Substance: MOMETASONE
     Indication: DERMATITIS ATOPIC
     Dosage: UNK
     Route: 061

REACTIONS (11)
  - Body height abnormal [Recovering/Resolving]
  - Gynaecomastia [Recovering/Resolving]
  - Soft tissue mass [Recovering/Resolving]
  - Muscle atrophy [Recovering/Resolving]
  - Cushingoid [Recovering/Resolving]
  - Waist circumference increased [Recovering/Resolving]
  - Hirsutism [Recovering/Resolving]
  - Limb asymmetry [Recovering/Resolving]
  - Product use issue [Recovered/Resolved]
  - Cushing^s syndrome [Recovered/Resolved]
  - Erythema [Recovering/Resolving]
